FAERS Safety Report 6107099-5 (Version None)
Quarter: 2009Q1

REPORT INFORMATION
  Report Type: 
  Country: None (occurrence: None)
  Receive Date: 20090309
  Receipt Date: 20090225
  Transmission Date: 20090719
  Serious: Yes (Hospitalization, Other)
  Sender: FDA-Public Use
  Company Number: US-JNJFOC-20081106244

PATIENT
  Sex: Female
  Weight: 72.12 kg

DRUGS (18)
  1. REMICADE [Suspect]
     Dosage: NOTED AS THE 50TH INFUSION
     Route: 042
  2. REMICADE [Suspect]
     Route: 042
  3. REMICADE [Suspect]
     Indication: RHEUMATOID ARTHRITIS
     Route: 042
  4. SOLU-MEDROL [Suspect]
     Indication: DRUG USE FOR UNKNOWN INDICATION
  5. METHOTREXATE [Concomitant]
     Route: 050
  6. METHOTREXATE [Concomitant]
     Route: 050
  7. ZESTORETIC [Concomitant]
     Dosage: DOSE ^20/12.5^
  8. FOLIC ACID [Concomitant]
  9. CITRACAL D [Concomitant]
  10. CELEBREX [Concomitant]
  11. ULTRAM [Concomitant]
  12. RESTORIL [Concomitant]
  13. CENTRUM SILVER [Concomitant]
  14. VITAMIN D [Concomitant]
  15. SYNTHROID [Concomitant]
  16. VICODIN [Concomitant]
  17. VALIUM [Concomitant]
  18. ROBAXIN [Concomitant]

REACTIONS (9)
  - ANXIETY [None]
  - ASTHMA [None]
  - CERVICAL SPINAL STENOSIS [None]
  - CHRONIC OBSTRUCTIVE PULMONARY DISEASE [None]
  - CONSTIPATION [None]
  - FATIGUE [None]
  - ORAL DISORDER [None]
  - PNEUMONIA [None]
  - TREMOR [None]
